FAERS Safety Report 23159861 (Version 5)
Quarter: 2025Q3

REPORT INFORMATION
  Report Type: Spontaneous
  Country: US (occurrence: US)
  Receive Date: 20231108
  Receipt Date: 20250714
  Transmission Date: 20251020
  Serious: Yes (Hospitalization)
  Sender: CALLIDITAS THERAPEUTICS AB
  Company Number: US-Calliditas-2023CAL01385

PATIENT
  Age: 48 Year
  Sex: Male

DRUGS (9)
  1. TARPEYO [Suspect]
     Active Substance: BUDESONIDE
     Indication: IgA nephropathy
     Dosage: 16 MG (4 MG CAPSULES) ONCE DAILY; CHANGED TO 8 MG AT UNKNOWN TIME
     Route: 048
     Dates: start: 20221021
  2. VALSARTAN [Concomitant]
     Active Substance: VALSARTAN
  3. ELIQUIS [Concomitant]
     Active Substance: APIXABAN
  4. FARXIGA [Concomitant]
     Active Substance: DAPAGLIFLOZIN PROPANEDIOL
  5. ALLOPURINOL [Concomitant]
     Active Substance: ALLOPURINOL
  6. FINASTERIDE [Concomitant]
     Active Substance: FINASTERIDE
  7. GABAPENTIN [Concomitant]
     Active Substance: GABAPENTIN
  8. VITAMINS [Concomitant]
     Active Substance: VITAMINS
  9. FILSPARI [Concomitant]
     Active Substance: SPARSENTAN

REACTIONS (12)
  - Diverticulitis intestinal perforated [Unknown]
  - Proteinuria [Not Recovered/Not Resolved]
  - Blood testosterone decreased [Unknown]
  - Fatigue [Recovered/Resolved]
  - Glomerular filtration rate decreased [Unknown]
  - COVID-19 [Unknown]
  - Drug ineffective [Unknown]
  - Frustration tolerance decreased [Unknown]
  - Product packaging quantity issue [Unknown]
  - Poor quality sleep [Not Recovered/Not Resolved]
  - Inappropriate schedule of product administration [Not Recovered/Not Resolved]
  - Prescribed underdose [Not Recovered/Not Resolved]

NARRATIVE: CASE EVENT DATE: 20250101
